FAERS Safety Report 4712710-7 (Version None)
Quarter: 2005Q3

REPORT INFORMATION
  Report Type: 
  Country: None (occurrence: None)
  Receive Date: 20050706
  Receipt Date: 20050418
  Transmission Date: 20060218
  Serious: No
  Sender: FDA-Public Use
  Company Number: 0205013

PATIENT
  Age: 46 Year
  Sex: Female
  Weight: 112.0385 kg

DRUGS (5)
  1. DEPODUR [Suspect]
     Indication: POSTOPERATIVE ANALGESIA
     Dosage: 15 MG (ONCE), EPIDURAL
     Route: 008
     Dates: start: 20050415, end: 20050415
  2. DESFLURANE (DESFLURANE) (INHALANT) [Concomitant]
  3. ROCURONIUM (ROCURONIUM) (INJECTION) [Concomitant]
  4. PROPOFOL (PROPOFOL) (INJECTION) [Concomitant]
  5. FENTANYL [Concomitant]

REACTIONS (2)
  - PRURITUS [None]
  - RESPIRATORY DEPRESSION [None]
